FAERS Safety Report 5562904-6 (Version None)
Quarter: 2007Q4

REPORT INFORMATION
  Report Type: 
  Country: None (occurrence: None)
  Receive Date: 20071212
  Receipt Date: 20071212
  Transmission Date: 20080405
  Serious: Yes (Hospitalization)
  Sender: FDA-Public Use
  Company Number: None

PATIENT
  Age: 55 Year
  Sex: Male

DRUGS (2)
  1. METOPROLOL TARTRATE [Suspect]
     Indication: HYPERTENSION
     Dosage: 12.5MG  BID  PO
     Route: 048
     Dates: start: 20071003, end: 20071128
  2. LISINOPRIL [Suspect]
     Dosage: 5MG  EVERY DAY  PO
     Route: 048
     Dates: start: 20071004, end: 20071128

REACTIONS (1)
  - HYPOTENSION [None]
